FAERS Safety Report 5178974-3 (Version None)
Quarter: 2006Q4

REPORT INFORMATION
  Report Type: 
  Country: None (occurrence: None)
  Receive Date: 20061213
  Receipt Date: 20061213
  Transmission Date: 20070319
  Serious: No
  Sender: FDA-Public Use
  Company Number: None

PATIENT
  Age: 58 Year
  Sex: Female
  Weight: 67 kg

DRUGS (3)
  1. VANCOMYCIN [Suspect]
     Indication: HIP ARTHROPLASTY
     Dosage: 1.25 GM IV Q12 HOURS
     Route: 042
     Dates: start: 20061128, end: 20061211
  2. VANCOMYCIN [Suspect]
     Indication: POSTOPERATIVE INFECTION
     Dosage: 1.25 GM IV Q12 HOURS
     Route: 042
     Dates: start: 20061128, end: 20061211
  3. VANCOMYCIN [Suspect]

REACTIONS (2)
  - EOSINOPHILIA [None]
  - RASH [None]
